FAERS Safety Report 8065535-1 (Version None)
Quarter: 2011Q4

REPORT INFORMATION
  Report Type: 
  Country: None (occurrence: None)
  Receive Date: 20111221
  Receipt Date: 20110314
  Transmission Date: 20120403
  Serious: Yes (Other)
  Sender: FDA-Public Use
  Company Number: PHHY2011US02259

PATIENT
  Age: 32 Year
  Sex: Female

DRUGS (1)
  1. EXJADE [Suspect]
     Dosage: 2000 MG, DAILY, ORAL
     Route: 048
     Dates: start: 20101218

REACTIONS (6)
  - FATIGUE [None]
  - DIARRHOEA [None]
  - GASTRIC ULCER [None]
  - PRURITUS GENERALISED [None]
  - ARTHRALGIA [None]
  - MYALGIA [None]
